FAERS Safety Report 7955149-3 (Version None)
Quarter: 2011Q4

REPORT INFORMATION
  Report Type: 
  Country: None (occurrence: None)
  Receive Date: 20111129
  Receipt Date: 20111115
  Transmission Date: 20120403
  Serious: Yes (Hospitalization)
  Sender: FDA-Public Use
  Company Number: 1112305

PATIENT
  Age: 72 Year
  Sex: Female
  Weight: 77.5651 kg

DRUGS (10)
  1. BISOPROLOL FUMARATE [Concomitant]
  2. SLOW-K [Concomitant]
  3. TEMAZEPAM [Concomitant]
  4. ISOSORBIDE MONONITRATE [Concomitant]
  5. (CARBASALATE CALCIUM) [Concomitant]
  6. ACETAMINOPHEN [Concomitant]
  7. DOCETAXEL [Suspect]
     Indication: ADENOCARCINOMA
     Dosage: 170 MG MILLIGRAM(S), INTRAVENOUS
     Route: 042
     Dates: start: 20111006
  8. LORAZEPAM [Concomitant]
  9. ATORVASTATIN [Concomitant]
  10. PANTOPRAZOLE [Concomitant]

REACTIONS (1)
  - HYPONATRAEMIA [None]
